FAERS Safety Report 5869540-2 (Version None)
Quarter: 2008Q3

REPORT INFORMATION
  Report Type: 
  Country: None (occurrence: None)
  Receive Date: 20080828
  Receipt Date: 20080820
  Transmission Date: 20090109
  Serious: Yes (Death, Life-Threatening, Hospitalization)
  Sender: FDA-Public Use
  Company Number: 16846

PATIENT
  Age: 65 Year
  Sex: Male

DRUGS (11)
  1. CYTARABINE [Suspect]
     Indication: ACUTE MYELOID LEUKAEMIA
     Dosage: 35.62 MG; OTH SC
     Route: 058
     Dates: start: 20070117, end: 20070323
  2. CYTARABINE [Suspect]
     Indication: ACUTE MYELOID LEUKAEMIA
     Dosage: 170 MG QD;
     Dates: start: 20070404, end: 20070408
  3. TERLIPRESSIN [Concomitant]
  4. DEXAMETHASONE [Concomitant]
  5. OMEPRAZOLE [Concomitant]
  6. POTASSIUM CHLORIDE [Concomitant]
  7. ETAMSYLATE [Concomitant]
  8. SUCRALFATE [Concomitant]
  9. CALCIUM [Concomitant]
  10. ESOMEPRAZOLE [Concomitant]
  11. TRANEXAMIC ACID [Concomitant]

REACTIONS (8)
  - ACUTE MYELOID LEUKAEMIA [None]
  - DRUG RESISTANCE [None]
  - GENERAL PHYSICAL HEALTH DETERIORATION [None]
  - HYPOKALAEMIA [None]
  - HYPONATRAEMIA [None]
  - MALIGNANT NEOPLASM PROGRESSION [None]
  - SMALL INTESTINAL HAEMORRHAGE [None]
  - SYNCOPE [None]
